FAERS Safety Report 9378479 (Version 3)
Quarter: 2014Q1

REPORT INFORMATION
  Report Type: Spontaneous
  Country: GB (occurrence: GB)
  Receive Date: 20130702
  Receipt Date: 20140314
  Transmission Date: 20141002
  Serious: Yes (Death, Other)
  Sender: FDA-Public Use
  Company Number: GB-ROCHE-1242873

PATIENT
  Age: 72 Year
  Sex: Male
  Weight: 69.3 kg

DRUGS (13)
  1. XELODA [Suspect]
     Indication: RECTOSIGMOID CANCER
     Route: 048
     Dates: start: 20130603, end: 20130609
  2. ALLOPURINOL [Concomitant]
     Indication: GOUT
     Route: 065
  3. ATENOLOL [Concomitant]
     Indication: HYPERTENSION
     Route: 065
  4. COD LIVER OIL [Concomitant]
     Route: 065
  5. ISPAGHULA HUSK [Concomitant]
     Indication: CONSTIPATION
     Route: 065
  6. MACROGOL [Concomitant]
     Route: 065
  7. OMEPRAZOLE [Concomitant]
     Route: 065
  8. GLYCERYL TRINITRATE [Concomitant]
     Indication: ANAL HAEMORRHAGE
  9. SIMVASTATIN [Concomitant]
     Indication: BLOOD TRIGLYCERIDES INCREASED
     Route: 065
  10. SIMVASTATIN [Concomitant]
     Indication: BLOOD CHOLESTEROL INCREASED
  11. TAMSULOSIN [Concomitant]
     Indication: PROSTATISM
     Route: 065
  12. TAMSULOSIN [Concomitant]
     Indication: ORTHOSTATIC HYPOTENSION
  13. VITAMIN D3 [Concomitant]
     Route: 065

REACTIONS (6)
  - Neutropenic sepsis [Fatal]
  - Neutropenia [Not Recovered/Not Resolved]
  - Diarrhoea [Not Recovered/Not Resolved]
  - Mucosal inflammation [Not Recovered/Not Resolved]
  - Stomatitis [Not Recovered/Not Resolved]
  - Thrombocytopenia [Not Recovered/Not Resolved]
